FAERS Safety Report 4683255-8 (Version None)
Quarter: 2005Q2

REPORT INFORMATION
  Report Type: 
  Country: None (occurrence: None)
  Receive Date: 20050602
  Receipt Date: 20050207
  Transmission Date: 20051028
  Serious: No
  Sender: FDA-Public Use
  Company Number: USA050290138

PATIENT
  Age: 41 Year
  Sex: Male
  Weight: 127 kg

DRUGS (4)
  1. CYMBALTA [Suspect]
     Indication: DEPRESSION
     Dosage: 60 MG/2 DAY
     Dates: start: 20041201
  2. KLONOPIN [Concomitant]
  3. AGGRENOX [Concomitant]
  4. SEREVENT [Concomitant]

REACTIONS (2)
  - PRESCRIBED OVERDOSE [None]
  - WEIGHT INCREASED [None]
